FAERS Safety Report 5495503-5 (Version None)
Quarter: 2007Q4

REPORT INFORMATION
  Report Type: 
  Country: None (occurrence: None)
  Receive Date: 20071023
  Receipt Date: 20071009
  Transmission Date: 20080405
  Serious: Yes (Other)
  Sender: FDA-Public Use
  Company Number: 2007JP003735

PATIENT
  Age: 71 Year
  Sex: Male
  Weight: 73.4 kg

DRUGS (6)
  1. VESICARE [Suspect]
     Indication: HYPERTONIC BLADDER
     Dosage: 5 MG, BID, ORAL
     Route: 048
     Dates: start: 20070711, end: 20070712
  2. BAYASPIRIN TABLETS [Concomitant]
  3. AMARYL [Concomitant]
  4. AMLODIPINE BESYLATE [Concomitant]
  5. DIOVAN [Concomitant]
  6. URSO 250 [Concomitant]

REACTIONS (1)
  - ERYTHEMA MULTIFORME [None]
